FAERS Safety Report 9061213 (Version 3)
Quarter: 2013Q2

REPORT INFORMATION
  Report Type: Spontaneous
  Country: JP (occurrence: JP)
  Receive Date: 20130204
  Receipt Date: 20130506
  Transmission Date: 20140414
  Serious: Yes (Hospitalization, Other)
  Sender: FDA-Public Use
  Company Number: JP-NOVOPROD-369318

PATIENT
  Age: 47 Year
  Sex: Male
  Weight: 58.5 kg

DRUGS (8)
  1. VICTOZA HIKACHU INJECTION [Suspect]
     Indication: TYPE 2 DIABETES MELLITUS
     Dosage: 0.3-0.9MG/DAY
     Route: 058
     Dates: start: 201202, end: 20120626
  2. KINEDAK [Suspect]
     Dosage: 150 MG, QD
     Route: 048
     Dates: start: 201202
  3. CYMBALTA [Suspect]
     Dosage: 20 MG, QD
     Route: 048
  4. PARIET [Suspect]
     Indication: GASTROOESOPHAGEAL REFLUX DISEASE
     Dosage: 20 MG, QD
     Route: 048
  5. DEPAS [Suspect]
     Indication: INSOMNIA
     Dosage: 1 MG, QD
     Route: 048
  6. JU-KAMA [Suspect]
     Indication: CONSTIPATION
     Dosage: 6 G, QD
     Route: 048
  7. CEREKINON [Suspect]
     Indication: GASTRITIS
     Dosage: 300 MG, QD
     Route: 048
  8. LYRICA [Suspect]
     Dosage: UNK
     Dates: start: 20120621

REACTIONS (3)
  - Demyelinating polyneuropathy [Unknown]
  - Urine ketone body [Unknown]
  - Anti-GAD antibody positive [Unknown]
